FAERS Safety Report 7788477-5 (Version None)
Quarter: 2011Q3

REPORT INFORMATION
  Report Type: 
  Country: None (occurrence: None)
  Receive Date: 20110928
  Receipt Date: 20110902
  Transmission Date: 20111222
  Serious: Yes (Hospitalization)
  Sender: FDA-Public Use
  Company Number: 2009SP023611

PATIENT
  Age: 19 Year
  Sex: Female
  Weight: 54.4316 kg

DRUGS (1)
  1. NUVARING [Suspect]
     Indication: CONTRACEPTION
     Dates: start: 20050801, end: 20070901

REACTIONS (20)
  - CHEST PAIN [None]
  - ILIAC VEIN OCCLUSION [None]
  - VENOUS OCCLUSION [None]
  - ABDOMINAL PAIN UPPER [None]
  - MATERNAL EXPOSURE DURING PREGNANCY [None]
  - DEEP VEIN THROMBOSIS [None]
  - VARICOSE VEIN [None]
  - POST THROMBOTIC SYNDROME [None]
  - PREGNANCY WITH CONTRACEPTIVE DEVICE [None]
  - COGNITIVE DISORDER [None]
  - EMOTIONAL DISORDER [None]
  - IMPAIRED WORK ABILITY [None]
  - DYSPNOEA [None]
  - ABORTION INDUCED [None]
  - ANXIETY [None]
  - MENTAL DISORDER [None]
  - INTERNATIONAL NORMALISED RATIO DECREASED [None]
  - IRON DEFICIENCY ANAEMIA [None]
  - INCISION SITE PAIN [None]
  - OEDEMA PERIPHERAL [None]
